FAERS Safety Report 18274888 (Version 3)
Quarter: 2020Q4

REPORT INFORMATION
  Report Type: Report from Study
  Country: DE (occurrence: DE)
  Receive Date: 20200916
  Receipt Date: 20201015
  Transmission Date: 20210113
  Serious: Yes (Death, Hospitalization, Other)
  Sender: FDA-Public Use
  Company Number: DE-JNJFOC-20200922840

PATIENT
  Age: 82 Year
  Sex: Male

DRUGS (1)
  1. VENTAVIS [Suspect]
     Active Substance: ILOPROST
     Indication: PULMONARY ARTERIAL HYPERTENSION
     Route: 055

REACTIONS (11)
  - Anaemia [Unknown]
  - Fluid retention [Unknown]
  - Oedema peripheral [Unknown]
  - Pneumonia [Recovered/Resolved with Sequelae]
  - Acute pulmonary oedema [Not Recovered/Not Resolved]
  - Death [Fatal]
  - Epistaxis [Unknown]
  - Spinal stenosis [Not Recovered/Not Resolved]
  - Atelectasis [Not Recovered/Not Resolved]
  - General physical health deterioration [Not Recovered/Not Resolved]
  - Weight decreased [Not Recovered/Not Resolved]

NARRATIVE: CASE EVENT DATE: 20200907
